FAERS Safety Report 4804878-9 (Version None)
Quarter: 2005Q4

REPORT INFORMATION
  Report Type: 
  Country: None (occurrence: None)
  Receive Date: 20051020
  Receipt Date: 20051012
  Transmission Date: 20060501
  Serious: Yes (Hospitalization, Other)
  Sender: FDA-Public Use
  Company Number: GB-BRISTOL-MYERS SQUIBB COMPANY-13145818

PATIENT
  Sex: Female

DRUGS (2)
  1. PACLITAXEL [Suspect]
     Indication: BREAST CANCER
     Route: 042
     Dates: start: 20050908
  2. GEMCITABINE [Concomitant]
     Indication: BREAST CANCER

REACTIONS (3)
  - DIZZINESS [None]
  - HYPONATRAEMIA [None]
  - TREMOR [None]
